FAERS Safety Report 4567872-1 (Version None)
Quarter: 2005Q1

REPORT INFORMATION
  Report Type: 
  Country: None (occurrence: None)
  Receive Date: 20050202
  Receipt Date: 20041202
  Transmission Date: 20050727
  Serious: No
  Sender: FDA-Public Use
  Company Number: US-GLAXOSMITHKLINE-A0535882A

PATIENT
  Age: 81 Year
  Sex: Female

DRUGS (3)
  1. AVANDAMET [Suspect]
     Route: 048
     Dates: start: 20040901
  2. CELEBREX [Suspect]
     Indication: ARTHRITIS
  3. VIACTIV [Concomitant]

REACTIONS (1)
  - OEDEMA PERIPHERAL [None]
